FAERS Safety Report 23843208 (Version 1)
Quarter: 2024Q2

REPORT INFORMATION
  Report Type: Spontaneous
  Country: CN (occurrence: CN)
  Receive Date: 20240510
  Receipt Date: 20240510
  Transmission Date: 20240716
  Serious: Yes (Hospitalization, Other)
  Sender: FDA-Public Use
  Company Number: CN-009507513-2405CHN002685

PATIENT
  Age: 65 Year
  Sex: Male

DRUGS (1)
  1. KEYTRUDA [Suspect]
     Active Substance: PEMBROLIZUMAB
     Indication: Hypopharyngeal cancer
     Dosage: 200MG IVGTT D1 Q3W
     Route: 041
     Dates: start: 20240312, end: 20240312

REACTIONS (3)
  - Myelosuppression [Recovering/Resolving]
  - Productive cough [Unknown]
  - Chest pain [Unknown]

NARRATIVE: CASE EVENT DATE: 20240301
